FAERS Safety Report 11519682 (Version 1)
Quarter: 2015Q3

REPORT INFORMATION
  Report Type: Spontaneous
  Country: GB (occurrence: GB)
  Receive Date: 20150918
  Receipt Date: 20150918
  Transmission Date: 20151125
  Serious: Yes (Death, Other)
  Sender: FDA-Public Use
  Company Number: GB-HOSPIRA-3006133

PATIENT
  Age: 13 Year
  Sex: Female
  Weight: 56 kg

DRUGS (5)
  1. NITROUS OXIDE. [Suspect]
     Active Substance: NITROUS OXIDE
     Indication: INDUCTION OF ANAESTHESIA
     Dosage: 50;50 GASEOUS MIXTURE FOR ANAESTHETIC INDUCTION
     Route: 055
     Dates: start: 20080801, end: 200812
  2. PROPOFOL. [Suspect]
     Active Substance: PROPOFOL
     Indication: PRODUCT USED FOR UNKNOWN INDICATION
  3. METHOTREXATE [Suspect]
     Active Substance: METHOTREXATE
     Indication: ACUTE LYMPHOCYTIC LEUKAEMIA
     Route: 042
     Dates: end: 20081209
  4. METHOTREXATE [Suspect]
     Active Substance: METHOTREXATE
     Indication: ACUTE LYMPHOCYTIC LEUKAEMIA
     Route: 037
     Dates: start: 20080801, end: 20081209
  5. OXYGEN. [Concomitant]
     Active Substance: OXYGEN
     Indication: PRODUCT USED FOR UNKNOWN INDICATION

REACTIONS (8)
  - Dysarthria [Not Recovered/Not Resolved]
  - Lethargy [Not Recovered/Not Resolved]
  - Drug interaction [Unknown]
  - Coordination abnormal [Not Recovered/Not Resolved]
  - Eyelid ptosis [Recovered/Resolved]
  - Leukoencephalopathy [Fatal]
  - Neurological decompensation [Not Recovered/Not Resolved]
  - Affect lability [Not Recovered/Not Resolved]

NARRATIVE: CASE EVENT DATE: 200812
